FAERS Safety Report 5513188-6 (Version None)
Quarter: 2007Q4

REPORT INFORMATION
  Report Type: 
  Country: None (occurrence: None)
  Receive Date: 20071112
  Receipt Date: 20061114
  Transmission Date: 20080405
  Serious: No
  Sender: FDA-Public Use
  Company Number: US-BRISTOL-MYERS SQUIBB COMPANY-13577994

PATIENT
  Sex: Female

DRUGS (4)
  1. SUSTIVA [Suspect]
  2. DAPSONE [Concomitant]
  3. MEPRON [Concomitant]
  4. TRUVADA [Concomitant]

REACTIONS (1)
  - DRUG SCREEN FALSE POSITIVE [None]
